FAERS Safety Report 8403182-X (Version None)
Quarter: 2012Q2

REPORT INFORMATION
  Report Type: 
  Country: None (occurrence: None)
  Receive Date: 20120601
  Receipt Date: 20120524
  Transmission Date: 20120825
  Serious: Yes (Hospitalization, Other)
  Sender: FDA-Public Use
  Company Number: US-JNJFOC-20120518542

PATIENT
  Age: 59 Year
  Sex: Male

DRUGS (10)
  1. DOXORUBICIN HCL [Suspect]
     Indication: CHRONIC MYELOID LEUKAEMIA
     Dosage: DAY 4
     Route: 042
  2. LINEZOLID [Suspect]
     Indication: PRODUCT USED FOR UNKNOWN INDICATION
     Route: 048
  3. VINCRISTINE [Suspect]
     Indication: CHRONIC MYELOID LEUKAEMIA
     Dosage: ON DAY 4 AND 11
     Route: 042
  4. DASATINIB [Suspect]
     Indication: CHRONIC MYELOID LEUKAEMIA
     Dosage: ON DAYS 11-14
     Route: 048
  5. CASPOFUNGIN ACETATE [Suspect]
     Indication: PRODUCT USED FOR UNKNOWN INDICATION
     Route: 042
  6. LEVOFLOXACIN [Suspect]
     Indication: PRODUCT USED FOR UNKNOWN INDICATION
     Route: 048
  7. CYCLOPHOSPHAMIDE [Suspect]
     Indication: CHRONIC MYELOID LEUKAEMIA
     Dosage: TWICE A DAY FOR 6 DOSES
     Route: 042
  8. DEXAMETHASONE [Suspect]
     Indication: CHRONIC MYELOID LEUKAEMIA
     Dosage: ON DAY1 AND DAYS 11-14
     Route: 048
  9. VALACYCLOVIR HYDROCHLORIDE [Suspect]
     Indication: PRODUCT USED FOR UNKNOWN INDICATION
     Route: 048
  10. DOXYCYCLINE [Suspect]
     Indication: PRODUCT USED FOR UNKNOWN INDICATION
     Route: 048

REACTIONS (1)
  - ZYGOMYCOSIS [None]
